FAERS Safety Report 20997109 (Version 3)
Quarter: 2023Q1

REPORT INFORMATION
  Report Type: Other
  Country: AU (occurrence: None)
  Receive Date: 20220623
  Receipt Date: 20230127
  Transmission Date: 20230417
  Serious: No
  Sender: FDA-Public Use
  Company Number: AU-ROCHE-3119861

PATIENT
  Age: 30 Year
  Sex: Male

DRUGS (2)
  1. OCREVUS [Suspect]
     Active Substance: OCRELIZUMAB
     Indication: Relapsing-remitting multiple sclerosis
     Dosage: 22/SEP/2021, 16/JUN/2022
     Route: 041
     Dates: start: 20180205
  2. OCREVUS [Suspect]
     Active Substance: OCRELIZUMAB
     Indication: Multiple sclerosis
     Dosage: 22/SEP/2021, 16/JUN/2022
     Route: 042
     Dates: start: 20230124, end: 20230124

REACTIONS (4)
  - Ear infection [Not Recovered/Not Resolved]
  - SARS-CoV-2 test positive [Unknown]
  - Off label use [Unknown]
  - Fatigue [Recovering/Resolving]

NARRATIVE: CASE EVENT DATE: 20230124
